FAERS Safety Report 17994018 (Version 8)
Quarter: 2024Q2

REPORT INFORMATION
  Report Type: Spontaneous
  Country: DE (occurrence: DE)
  Receive Date: 20200708
  Receipt Date: 20240401
  Transmission Date: 20240716
  Serious: Yes (Other)
  Sender: FDA-Public Use
  Company Number: DE-BAYER-2020-126581

PATIENT
  Age: 30 Year
  Sex: Male

DRUGS (24)
  1. VALPROIC ACID [Interacting]
     Active Substance: VALPROIC ACID
     Indication: Seizure
     Dosage: DAILY DOSE GREATER THAN 2000 MG DAILY
     Route: 065
  2. VALPROIC ACID [Interacting]
     Active Substance: VALPROIC ACID
     Indication: Epilepsy
     Dosage: 2000 MILLIGRAM, QD
     Route: 065
  3. VALPROIC ACID [Interacting]
     Active Substance: VALPROIC ACID
     Indication: Partial seizures
     Dosage: 200 MILLIGRAM, QD
     Route: 065
  4. VALPROIC ACID [Interacting]
     Active Substance: VALPROIC ACID
     Dosage: UNK(UNK, INITIAL DOSE UNKNOWN)
     Route: 065
  5. LAMOTRIGINE [Suspect]
     Active Substance: LAMOTRIGINE
     Indication: Seizure
     Dosage: 2000 MILLIGRAM, QD
     Route: 065
  6. LAMOTRIGINE [Suspect]
     Active Substance: LAMOTRIGINE
     Dosage: 200 MILLIGRAM, QD
     Route: 065
  7. LAMOTRIGINE [Suspect]
     Active Substance: LAMOTRIGINE
     Dosage: 400 MILLIGRAM, QD
     Route: 065
  8. VALPROATE [Interacting]
     Active Substance: VALPROIC ACID
     Indication: Seizure
     Dosage: 200 MILLIGRAM, QD
     Route: 065
  9. VALPROATE [Interacting]
     Active Substance: VALPROIC ACID
     Indication: Epilepsy
     Dosage: 2000 MILLIGRAM, QD
     Route: 065
  10. VALPROATE [Interacting]
     Active Substance: VALPROIC ACID
     Indication: Partial seizures
  11. RIVAROXABAN [Interacting]
     Active Substance: RIVAROXABAN
     Indication: Deep vein thrombosis
     Dosage: 15 MILLIGRAM, QD
     Route: 048
  12. RIVAROXABAN [Interacting]
     Active Substance: RIVAROXABAN
     Indication: Epilepsy
     Dosage: 20 MILLIGRAM
     Route: 048
  13. RIVAROXABAN [Interacting]
     Active Substance: RIVAROXABAN
     Indication: Deep vein thrombosis
     Dosage: 20 MILLIGRAM, QD
     Route: 065
  14. RIVAROXABAN [Interacting]
     Active Substance: RIVAROXABAN
     Indication: Anticoagulant therapy
     Dosage: 15 MILLIGRAM, QD
     Route: 065
  15. RIVAROXABAN [Interacting]
     Active Substance: RIVAROXABAN
     Dosage: 20 MILLIGRAM, QD
     Route: 065
  16. RIVAROXABAN [Interacting]
     Active Substance: RIVAROXABAN
     Dosage: 15 MILLIGRAM, QD
     Route: 065
  17. XARELTO [Suspect]
     Active Substance: RIVAROXABAN
     Indication: Deep vein thrombosis
     Dosage: 15 MILLIGRAM, QD
     Route: 065
  18. XARELTO [Suspect]
     Active Substance: RIVAROXABAN
     Dosage: 20 MILLIGRAM
     Route: 065
  19. LAMOTRIGINE [Concomitant]
     Active Substance: LAMOTRIGINE
     Indication: Epilepsy
     Dosage: 200 MILLIGRAM, QD(DAILY DOSE 200 MG)
     Route: 065
  20. LAMOTRIGINE [Concomitant]
     Active Substance: LAMOTRIGINE
     Indication: Partial seizures
     Dosage: 400 MILLIGRAM, QD(DAILY DOSE 400 MG)
     Route: 065
  21. LAMOTRIGINE [Concomitant]
     Active Substance: LAMOTRIGINE
     Indication: Seizure
     Dosage: 2000 MILLIGRAM, QD
     Route: 065
  22. LAMOTRIGINE [Concomitant]
     Active Substance: LAMOTRIGINE
     Dosage: UNK
     Route: 065
  23. PIPAMPERONE [Concomitant]
     Active Substance: PIPAMPERONE
     Indication: Epilepsy
     Dosage: 20 MILLIGRAM, QD,FOLLOW-UP DAILY DOSE 20 MG
     Route: 065
  24. PERAMPANEL [Concomitant]
     Active Substance: PERAMPANEL
     Indication: Epilepsy
     Dosage: FOLLOW-UP DAILY DOSE: 8 MG
     Route: 065

REACTIONS (7)
  - Deep vein thrombosis [Unknown]
  - Anticoagulation drug level decreased [Recovered/Resolved]
  - Drug interaction [Unknown]
  - Inhibitory drug interaction [Unknown]
  - Off label use [Unknown]
  - Hyperhomocysteinaemia [Unknown]
  - Drug ineffective [Unknown]
